FAERS Safety Report 4712653-9 (Version None)
Quarter: 2005Q3

REPORT INFORMATION
  Report Type: 
  Country: None (occurrence: None)
  Receive Date: 20050706
  Receipt Date: 20041026
  Transmission Date: 20060218
  Serious: Yes (Hospitalization)
  Sender: FDA-Public Use
  Company Number: US-2004-031226

PATIENT
  Age: 46 Year
  Sex: Female
  Weight: 138.3 kg

DRUGS (11)
  1. CAMPATH [Suspect]
     Indication: CHRONIC LYMPHOCYTIC LEUKAEMIA
     Dosage: 30 MG, 3X/WEEK, INTRAVENOUS
     Route: 042
     Dates: start: 20040719, end: 20040809
  2. ACETAMINOPHEN [Concomitant]
  3. DIPHENHYDRAMINE [Concomitant]
  4. ANZEMET (DOLASETRON MESILATE) [Concomitant]
  5. FAMVIR /NET (PENCICLOVIR) [Concomitant]
  6. DAPSONE [Concomitant]
  7. GLUCOPHAGE [Concomitant]
  8. COUMADIN [Concomitant]
  9. LIPITOR /NET/(ATORVASTATIN CALCIUM) [Concomitant]
  10. LOTENSIN (BENAZEPRIL HYSROCHLORIDE) [Concomitant]
  11. SINGULAIR (MONTELUKAST) [Concomitant]

REACTIONS (1)
  - PYREXIA [None]
